FAERS Safety Report 16836751 (Version 3)
Quarter: 2019Q4

REPORT INFORMATION
  Report Type: Spontaneous
  Country: CA (occurrence: CA)
  Receive Date: 20190922
  Receipt Date: 20191117
  Transmission Date: 20200122
  Serious: Yes (Other)
  Sender: FDA-Public Use
  Company Number: CA-BEH-2019107051

PATIENT
  Age: 50 Year
  Sex: Male

DRUGS (4)
  1. TAZOBACTAM [Concomitant]
     Active Substance: TAZOBACTAM
     Dosage: 3.375 GRAM
     Route: 042
  2. RIFAXIMIN. [Concomitant]
     Active Substance: RIFAXIMIN
     Dosage: 550 MILLIGRAM
     Route: 048
  3. ALBUREX [Suspect]
     Active Substance: ALBUMIN HUMAN
     Indication: ABDOMINAL CAVITY DRAINAGE
     Dosage: 50 MILLILITER, TOT
     Route: 065
     Dates: start: 20190903, end: 20190903
  4. VANCOMYCIN [Concomitant]
     Active Substance: VANCOMYCIN
     Dosage: 100 MILLIGRAM
     Route: 048

REACTIONS (11)
  - Nausea [Unknown]
  - Hypoxia [Unknown]
  - Pyrexia [Unknown]
  - Febrile nonhaemolytic transfusion reaction [Unknown]
  - Dyspnoea [Recovered/Resolved]
  - Encephalopathy [Unknown]
  - Hypertension [Recovered/Resolved]
  - Wheezing [Recovered/Resolved]
  - Chills [Recovered/Resolved]
  - Cough [Unknown]
  - Abdominal pain [Unknown]

NARRATIVE: CASE EVENT DATE: 20190903
